FAERS Safety Report 8301338-8 (Version None)
Quarter: 2012Q2

REPORT INFORMATION
  Report Type: 
  Country: None (occurrence: None)
  Receive Date: 20120420
  Receipt Date: 20120416
  Transmission Date: 20120825
  Serious: Yes (Death)
  Sender: FDA-Public Use
  Company Number: DE-ROCHE-1048762

PATIENT
  Sex: Female
  Weight: 47 kg

DRUGS (17)
  1. ALBUTEROL [Concomitant]
     Indication: BRONCHITIS
     Dates: start: 20090119, end: 20090801
  2. BUDES [Concomitant]
     Indication: BRONCHITIS
     Dates: start: 20090316, end: 20090801
  3. DECOSTRIOL [Concomitant]
     Indication: CROHN'S DISEASE
     Route: 048
     Dates: start: 20081015, end: 20090801
  4. RESTEX RETARD [Concomitant]
     Indication: RESTLESS LEGS SYNDROME
     Dates: start: 20090325, end: 20090801
  5. MIRCERA [Suspect]
     Indication: PRODUCT USED FOR UNKNOWN INDICATION
     Route: 042
     Dates: start: 20090727, end: 20090801
  6. TORSEMIDE [Concomitant]
     Indication: RENAL FAILURE
     Route: 048
     Dates: start: 20080211, end: 20090801
  7. CALCIUMACETAT [Concomitant]
     Indication: HYPERPHOSPHATAEMIA
     Route: 048
     Dates: start: 20090624, end: 20090801
  8. TETRAZEPAM [Concomitant]
     Indication: AGITATION
     Route: 048
     Dates: start: 20090427, end: 20090801
  9. FOSRENOL [Concomitant]
     Indication: HYPERPHOSPHATAEMIA
     Route: 048
     Dates: start: 20090204, end: 20090801
  10. BISOPROLOL FUMARATE [Concomitant]
     Indication: HYPERTENSION
     Route: 048
     Dates: start: 20090427, end: 20090801
  11. JODTHYROX [Concomitant]
     Route: 048
     Dates: start: 20070828, end: 20090801
  12. DREISAVIT [Concomitant]
     Indication: PROPHYLAXIS
     Route: 048
     Dates: start: 20070827, end: 20090801
  13. DICLOFENAC SODIUM [Concomitant]
     Indication: PAIN
     Route: 048
     Dates: start: 20071008, end: 20090801
  14. ENTOCORT EC [Concomitant]
     Indication: DIVERTICULUM INTESTINAL
     Route: 048
     Dates: start: 20090710, end: 20090801
  15. DOXEPIN HCL [Concomitant]
     Indication: AGITATION
     Route: 048
     Dates: start: 20071017, end: 20090801
  16. TILIDIN N [Concomitant]
     Indication: PAIN
     Dosage: DOSE: 100/8 MG
     Route: 048
     Dates: start: 20080209, end: 20090801
  17. OMEPRAZOLE [Concomitant]
     Route: 048
     Dates: start: 20080929, end: 20090801

REACTIONS (1)
  - SEPSIS [None]
